FAERS Safety Report 6774247-3 (Version None)
Quarter: 2010Q2

REPORT INFORMATION
  Report Type: 
  Country: None (occurrence: None)
  Receive Date: 20100617
  Receipt Date: 20100609
  Transmission Date: 20101027
  Serious: Yes (Other)
  Sender: FDA-Public Use
  Company Number: JP-PFIZER INC-2010073066

PATIENT

DRUGS (1)
  1. SOLANAX [Suspect]
     Dosage: 1 TIME PER 2 TO 3 DAYS
     Route: 048

REACTIONS (1)
  - SUICIDAL IDEATION [None]
